FAERS Safety Report 4508686-8 (Version None)
Quarter: 2004Q4

REPORT INFORMATION
  Report Type: 
  Country: None (occurrence: None)
  Receive Date: 20041123
  Receipt Date: 20040603
  Transmission Date: 20050328
  Serious: No
  Sender: FDA-Public Use
  Company Number: US-GLAXOSMITHKLINE-A0513268A

PATIENT
  Age: 41 Year
  Sex: Male

DRUGS (6)
  1. WELLBUTRIN SR [Suspect]
     Indication: DEPRESSION
     Dosage: 150MG TWICE PER DAY
     Route: 048
     Dates: start: 20040301
  2. ZESTRIL [Concomitant]
  3. PROTONIX [Concomitant]
  4. TRAZODONE HCL [Concomitant]
  5. KLONOPIN [Concomitant]
  6. ZOCOR [Concomitant]

REACTIONS (2)
  - DIZZINESS [None]
  - TINNITUS [None]
